FAERS Safety Report 9007096 (Version 1)
Quarter: 2013Q1

REPORT INFORMATION
  Report Type: Spontaneous
  Country: GB (occurrence: GB)
  Receive Date: 20130110
  Receipt Date: 20130110
  Transmission Date: 20140127
  Serious: Yes (Life-Threatening)
  Sender: FDA-Public Use
  Company Number: GB-PFIZER INC-2013003604

PATIENT
  Age: 9 Year
  Sex: Female
  Weight: 37 kg

DRUGS (15)
  1. ZYVOX [Suspect]
     Indication: ENTEROCOCCAL INFECTION
     Dosage: 360 MG, 3X/DAY
     Route: 048
     Dates: start: 20121109, end: 20121118
  2. ZYVOX [Suspect]
     Indication: ENTEROCOCCAL INFECTION
     Dosage: 360 MG, 3X/DAY
     Route: 042
     Dates: start: 20121109, end: 20121118
  3. CYCLOPHOSPHAMIDE [Concomitant]
     Indication: BONE MARROW TRANSPLANT
     Dosage: 60 MG/KG, UNK
     Route: 042
     Dates: start: 20121020
  4. ONDANSETRON [Concomitant]
  5. ITRACONAZOLE [Concomitant]
  6. MEROPENEM [Concomitant]
  7. URSODEOXYCHOLIC ACID [Concomitant]
  8. SANDIMMUN [Concomitant]
  9. PIPERACILLIN/TAZOBACTAM [Concomitant]
  10. ACICLOVIR [Concomitant]
  11. MORPHINE [Concomitant]
  12. PANTOPRAZOLE [Concomitant]
  13. FUROSEMIDE [Concomitant]
  14. GABAPENTIN [Concomitant]
  15. PARACETAMOL [Concomitant]

REACTIONS (6)
  - Venoocclusive disease [Recovering/Resolving]
  - Hepatotoxicity [Recovering/Resolving]
  - Renal impairment [Recovering/Resolving]
  - Blood lactic acid increased [Recovering/Resolving]
  - Hyperkalaemia [Recovering/Resolving]
  - Liver function test abnormal [Recovering/Resolving]
